FAERS Safety Report 12768777 (Version 1)
Quarter: 2016Q3

REPORT INFORMATION
  Report Type: Spontaneous
  Country: US (occurrence: US)
  Receive Date: 20160921
  Receipt Date: 20160921
  Transmission Date: 20161109
  Serious: No
  Sender: FDA-Public Use
  Company Number: US-JAZZ-2016-US-010293

PATIENT
  Sex: Female

DRUGS (29)
  1. XYREM [Suspect]
     Active Substance: SODIUM OXYBATE
     Indication: NARCOLEPSY
     Dosage: 3 G, BID
     Route: 048
     Dates: start: 201304, end: 201304
  2. XYREM [Suspect]
     Active Substance: SODIUM OXYBATE
     Indication: CATAPLEXY
     Dosage: DOSE ADJUSTMENTS
     Route: 048
     Dates: start: 201304, end: 201405
  3. XYREM [Suspect]
     Active Substance: SODIUM OXYBATE
     Dosage: 5.25 G, TID
     Route: 048
     Dates: start: 201503, end: 2015
  4. XYREM [Suspect]
     Active Substance: SODIUM OXYBATE
     Dosage: 2.25 G, BID
     Route: 048
     Dates: start: 201605
  5. TRAZODONE [Concomitant]
     Active Substance: TRAZODONE HYDROCHLORIDE
  6. MARINOL [Concomitant]
     Active Substance: DRONABINOL
  7. BUMETANIDE. [Concomitant]
     Active Substance: BUMETANIDE
  8. CYMBALTA [Concomitant]
     Active Substance: DULOXETINE HYDROCHLORIDE
  9. POTASSIUM CL ER [Concomitant]
     Active Substance: POTASSIUM CHLORIDE
  10. SYNTHROID [Concomitant]
     Active Substance: LEVOTHYROXINE SODIUM
  11. HYDROXYZINE HCL [Concomitant]
     Active Substance: HYDROXYZINE HYDROCHLORIDE
  12. FLURAZEPAM [Concomitant]
     Active Substance: FLURAZEPAM\FLURAZEPAM HYDROCHLORIDE
  13. CLONIDINE HCL [Concomitant]
     Active Substance: CLONIDINE HYDROCHLORIDE
  14. PROMETHAZINE [Concomitant]
     Active Substance: PROMETHAZINE\PROMETHAZINE HYDROCHLORIDE
  15. CLONAZEPAM. [Concomitant]
     Active Substance: CLONAZEPAM
  16. ALPRAZOLAM ER [Concomitant]
     Active Substance: ALPRAZOLAM
  17. AMITIZA [Concomitant]
     Active Substance: LUBIPROSTONE
  18. PROMETRIUM [Concomitant]
     Active Substance: PROGESTERONE
  19. REMERON [Concomitant]
     Active Substance: MIRTAZAPINE
  20. XANAX [Concomitant]
     Active Substance: ALPRAZOLAM
  21. XYREM [Suspect]
     Active Substance: SODIUM OXYBATE
     Dosage: 5.25 G, TID
     Route: 048
     Dates: start: 201405, end: 2014
  22. METHOCARBAMOL. [Concomitant]
     Active Substance: METHOCARBAMOL
  23. ZOLPIDEM TARTRATE ER [Concomitant]
     Active Substance: ZOLPIDEM TARTRATE
  24. SOMA [Concomitant]
     Active Substance: CARISOPRODOL
  25. MYRBETRIQ ER [Concomitant]
  26. EDLUAR [Concomitant]
     Active Substance: ZOLPIDEM TARTRATE
  27. GABAPENTIN. [Concomitant]
     Active Substance: GABAPENTIN
  28. FROVA [Concomitant]
     Active Substance: FROVATRIPTAN SUCCINATE
  29. TOPAMAX [Concomitant]
     Active Substance: TOPIRAMATE

REACTIONS (3)
  - Activities of daily living impaired [Not Recovered/Not Resolved]
  - Irritability [Not Recovered/Not Resolved]
  - Drug ineffective [Unknown]
